FAERS Safety Report 9963004 (Version 1)
Quarter: 2014Q1

REPORT INFORMATION
  Report Type: Spontaneous
  Country: US (occurrence: US)
  Receive Date: 20140305
  Receipt Date: 20140305
  Transmission Date: 20141002
  Serious: No
  Sender: FDA-Public Use
  Company Number: US-TARO-2013P1005039

PATIENT
  Age: 49 Year
  Sex: Female
  Weight: 65.77 kg

DRUGS (6)
  1. NYSTATIN CREAM USP 100,000 UNITS/G [Suspect]
     Route: 061
     Dates: start: 201302, end: 20130401
  2. KETOCONAZOLE CREAM 2% [Suspect]
     Route: 061
     Dates: start: 20130401
  3. MULTIVITAMIN [Concomitant]
  4. GLUCOSAMINE [Concomitant]
  5. FISH OIL [Concomitant]
  6. COUMADIN [Concomitant]
     Dates: start: 201208

REACTIONS (2)
  - Rash [Not Recovered/Not Resolved]
  - Drug ineffective [Not Recovered/Not Resolved]
